FAERS Safety Report 9737170 (Version 1)
Quarter: 2013Q4

REPORT INFORMATION
  Report Type: Report from Study
  Country: IT (occurrence: IT)
  Receive Date: 20131206
  Receipt Date: 20131206
  Transmission Date: 20140711
  Serious: Yes (Hospitalization)
  Sender: FDA-Public Use
  Company Number: IT-CELGENEUS-083-C4047-13114890

PATIENT
  Age: 67 Year
  Sex: Male
  Weight: 82 kg

DRUGS (4)
  1. CC-4047 [Suspect]
     Indication: AMYLOIDOSIS
     Route: 048
     Dates: start: 20121215
  2. CC-4047 [Suspect]
     Route: 048
     Dates: end: 20130124
  3. DEXAMETHASONE [Suspect]
     Indication: AMYLOIDOSIS
     Route: 065
     Dates: start: 20121215
  4. DEXAMETHASONE [Suspect]
     Route: 065
     Dates: end: 20130124

REACTIONS (1)
  - Pneumonitis [Recovered/Resolved]
